FAERS Safety Report 6050929-6 (Version None)
Quarter: 2009Q1

REPORT INFORMATION
  Report Type: 
  Country: None (occurrence: None)
  Receive Date: 20090121
  Receipt Date: 20090112
  Transmission Date: 20090719
  Serious: Yes (Death)
  Sender: FDA-Public Use
  Company Number: GXKR2009GR00667

PATIENT
  Age: 51 Year
  Sex: Female

DRUGS (5)
  1. VINCRISTINE [Suspect]
     Indication: T-CELL TYPE ACUTE LEUKAEMIA
     Dosage: 1.5 MG/M2, DAYS 1 AND 8
  2. PREDNISONE [Suspect]
     Indication: T-CELL TYPE ACUTE LEUKAEMIA
     Dosage: 40 MG/M2, DAILY
  3. METHOTREXATE [Suspect]
     Indication: T-CELL TYPE ACUTE LEUKAEMIA
     Dosage: 12.5 MG, EVERY 14 DAYS, INTRATHECAL
     Route: 037
  4. DAUNORUBICIN HCL [Suspect]
     Indication: T-CELL TYPE ACUTE LEUKAEMIA
     Dosage: 45 MG/M2 DAILY
  5. ASPARAGINASE (ASPARAGINASE) [Suspect]
     Indication: T-CELL TYPE ACUTE LEUKAEMIA
     Dosage: 6000 IU/M2 EVERY SECOND DAY

REACTIONS (15)
  - ABDOMINAL PAIN UPPER [None]
  - ASCITES [None]
  - FACIAL PARESIS [None]
  - FLATULENCE [None]
  - HEMIPARESIS [None]
  - HEPATOMEGALY [None]
  - HYPOAESTHESIA [None]
  - JAUNDICE [None]
  - PANCYTOPENIA [None]
  - PYREXIA [None]
  - SOMNOLENCE [None]
  - STUPOR [None]
  - VENOOCCLUSIVE LIVER DISEASE [None]
  - VOMITING [None]
  - WEIGHT INCREASED [None]
